FAERS Safety Report 23658784 (Version 1)
Quarter: 2024Q1

REPORT INFORMATION
  Report Type: Report from Study
  Country: US (occurrence: US)
  Receive Date: 20240321
  Receipt Date: 20240321
  Transmission Date: 20240410
  Serious: Yes (Other)
  Sender: FDA-Public Use
  Company Number: US-PFIZER INC-202400068361

PATIENT
  Sex: Female

DRUGS (6)
  1. HYDROXYZINE PAMOATE [Suspect]
     Active Substance: HYDROXYZINE PAMOATE
     Indication: Anxiety
     Dosage: UNK
     Route: 065
     Dates: start: 20210410, end: 20211212
  2. ARIPIPRAZOLE [Suspect]
     Active Substance: ARIPIPRAZOLE
     Indication: Depression
     Dosage: 2 MG
     Route: 065
     Dates: start: 20210731, end: 20211212
  3. CITALOPRAM [Suspect]
     Active Substance: CITALOPRAM\CITALOPRAM HYDROBROMIDE
     Indication: Depression
     Dosage: UNK
     Route: 065
     Dates: start: 20210312, end: 20211212
  4. AMPHETAMINE [Suspect]
     Active Substance: AMPHETAMINE
     Indication: Attention deficit hyperactivity disorder
     Dosage: UNK (XR)
     Route: 065
     Dates: start: 20210312, end: 20210410
  5. AMPHETAMINE [Suspect]
     Active Substance: AMPHETAMINE
     Dosage: UNK (IR)
     Route: 065
     Dates: start: 20210312, end: 20211212
  6. ATOMOXETINE [Suspect]
     Active Substance: ATOMOXETINE\ATOMOXETINE HYDROCHLORIDE
     Indication: Attention deficit hyperactivity disorder
     Dosage: UNK
     Route: 065
     Dates: start: 20210410, end: 20211212

REACTIONS (11)
  - Maternal exposure during pregnancy [Unknown]
  - Congenital hypothyroidism [Unknown]
  - Hypotonia neonatal [Unknown]
  - Gross motor delay [Unknown]
  - Torticollis [Unknown]
  - Posture abnormal [Unknown]
  - Muscular weakness [Unknown]
  - Haemangioma [Unknown]
  - Acquired plagiocephaly [Recovered/Resolved]
  - Abdominal hernia [Unknown]
  - Waist circumference increased [Unknown]

NARRATIVE: CASE EVENT DATE: 20210312
